FAERS Safety Report 4794901-2 (Version None)
Quarter: 2005Q4

REPORT INFORMATION
  Report Type: 
  Country: None (occurrence: None)
  Receive Date: 20051012
  Receipt Date: 20050927
  Transmission Date: 20060501
  Serious: Yes (Hospitalization)
  Sender: FDA-Public Use
  Company Number: US-BOEHRINGER INGELHEIM PHARMACEUTICALS, INC.-2005-BP-17174BP

PATIENT
  Sex: Male
  Weight: 44.5 kg

DRUGS (4)
  1. TIPRANAVIR / RITONAVIR CAPSULES [Suspect]
     Indication: HIV INFECTION
     Dosage: TPV/R 1000/400 MG
     Route: 048
     Dates: start: 20050305, end: 20050622
  2. TRUVADA [Concomitant]
     Indication: HIV INFECTION
     Route: 048
     Dates: start: 20050305, end: 20050722
  3. VIRACEPT [Concomitant]
     Indication: HIV INFECTION
     Route: 048
     Dates: start: 20050305, end: 20050722
  4. MEGACE [Concomitant]
     Indication: MALNUTRITION
     Route: 048
     Dates: start: 20050628

REACTIONS (1)
  - HYPOVOLAEMIA [None]
